FAERS Safety Report 6076588-4 (Version None)
Quarter: 2009Q1

REPORT INFORMATION
  Report Type: 
  Country: None (occurrence: None)
  Receive Date: 20090211
  Receipt Date: 20090122
  Transmission Date: 20090719
  Serious: Yes (Other)
  Sender: FDA-Public Use
  Company Number: 102815

PATIENT
  Age: 6 Year
  Sex: Female
  Weight: 8.6183 kg

DRUGS (1)
  1. LICE BEDDING SPRAY [Suspect]
     Dosage: TOPICAL
     Route: 061
     Dates: start: 20081026, end: 20081026

REACTIONS (8)
  - BURNING SENSATION [None]
  - DYSPNOEA [None]
  - EYE SWELLING [None]
  - HEADACHE [None]
  - HYPERSENSITIVITY [None]
  - INSOMNIA [None]
  - OCULAR HYPERAEMIA [None]
  - VISION BLURRED [None]
